FAERS Safety Report 16828721 (Version 1)
Quarter: 2019Q3

REPORT INFORMATION
  Report Type: Spontaneous
  Country: AT (occurrence: AT)
  Receive Date: 20190919
  Receipt Date: 20190919
  Transmission Date: 20191005
  Serious: Yes (Other)
  Sender: FDA-Public Use
  Company Number: AT-MYLANLABS-2019M1086635

PATIENT
  Age: 65 Year
  Sex: Female
  Weight: 62 kg

DRUGS (5)
  1. BEZAFIBRATE [Suspect]
     Active Substance: BEZAFIBRATE
     Dosage: 400 MILLIGRAM, QD (1-0-0)
     Dates: start: 20190225, end: 20190228
  2. CRESTOR [Suspect]
     Active Substance: ROSUVASTATIN CALCIUM
     Indication: PRODUCT USED FOR UNKNOWN INDICATION
     Dosage: 1 DOSAGE FORM, QD (0-0-1)
     Dates: start: 20190208, end: 20190216
  3. BEZAFIBRATE [Suspect]
     Active Substance: BEZAFIBRATE
     Indication: PRODUCT USED FOR UNKNOWN INDICATION
     Dosage: 400 MILLIGRAM, QD (1-0-0)
     Dates: start: 20190209, end: 20190212
  4. CRESTOR [Suspect]
     Active Substance: ROSUVASTATIN CALCIUM
     Dosage: 1 DOSAGE FORM, QD (0-0-1)
     Dates: start: 20190225, end: 20190228
  5. BISOPROLOL [Suspect]
     Active Substance: BISOPROLOL
     Indication: PRODUCT USED FOR UNKNOWN INDICATION
     Dosage: UNK
     Dates: start: 201902

REACTIONS (9)
  - Anaesthesia [Not Recovered/Not Resolved]
  - Peripheral swelling [Unknown]
  - Decreased interest [Unknown]
  - Sleep disorder [Unknown]
  - Myalgia [Unknown]
  - Nausea [Unknown]
  - Anhedonia [Unknown]
  - Arrhythmia [Unknown]
  - Headache [Unknown]

NARRATIVE: CASE EVENT DATE: 201902
